FAERS Safety Report 14064350 (Version 2)
Quarter: 2017Q4

REPORT INFORMATION
  Report Type: Spontaneous
  Country: HU (occurrence: HU)
  Receive Date: 20171009
  Receipt Date: 20171024
  Transmission Date: 20180321
  Serious: Yes (Death)
  Sender: FDA-Public Use
  Company Number: HU-PFIZER INC-2017429608

PATIENT
  Age: 62 Year
  Sex: Male

DRUGS (12)
  1. PANTOPRAZOL [Concomitant]
     Active Substance: PANTOPRAZOLE SODIUM
     Dosage: 2X20MG
  2. DHC [Concomitant]
     Active Substance: DIHYDROCODEINE BITARTRATE
     Dosage: AS NEEDED
  3. MILURIT [Concomitant]
     Active Substance: ALLOPURINOL
     Dosage: 1X300MG
  4. DOLFORIN [Concomitant]
     Active Substance: FENTANYL
     Dosage: 75UGR/H, EVERY 72 HOURS
  5. RINGER /01179901/ [Concomitant]
     Dosage: INFUSION
  6. RUTASCORBIN [Concomitant]
     Dosage: 3X2 TAB
  7. FOLSAV [Concomitant]
     Dosage: 1X1TAB
  8. XALKORI [Suspect]
     Active Substance: CRIZOTINIB
     Indication: LUNG ADENOCARCINOMA
     Dosage: 500 MG, 2X/DAY
     Route: 048
     Dates: start: 20171001
  9. COVERCARD [Concomitant]
     Active Substance: AMLODIPINE BESYLATE\PERINDOPRIL ARGININE
     Dosage: 5/10, IN THE EVENING 1 TAB
  10. DICYNONE [Concomitant]
     Active Substance: ETHAMSYLATE
     Dosage: 2X1 TAB
  11. COVEREX AS KOMB FORTE [Concomitant]
     Dosage: 1X1 TAB
  12. NEBILET [Concomitant]
     Active Substance: NEBIVOLOL
     Dosage: 1X1/2 TAB

REACTIONS (1)
  - Respiratory failure [Fatal]

NARRATIVE: CASE EVENT DATE: 20171002
